FAERS Safety Report 8305719 (Version 2)
Quarter: 2014Q1

REPORT INFORMATION
  Report Type: Spontaneous
  Country: US (occurrence: US)
  Receive Date: 20111221
  Receipt Date: 20140107
  Transmission Date: 20141002
  Serious: Yes (Hospitalization)
  Sender: FDA-Public Use
  Company Number: US-GLAXOSMITHKLINE-A0931091A

PATIENT
  Age: 71 Year
  Sex: Female

DRUGS (1)
  1. AVANDIA [Suspect]
     Indication: DIABETES MELLITUS
     Dosage: 4MG PER DAY
     Route: 048
     Dates: start: 20010517, end: 20070611

REACTIONS (8)
  - Cardiac failure congestive [Recovering/Resolving]
  - Coronary artery occlusion [Unknown]
  - Sick sinus syndrome [Unknown]
  - Atrial fibrillation [Unknown]
  - Sick sinus syndrome [Unknown]
  - Cardiac pacemaker insertion [Unknown]
  - Coronary artery disease [Unknown]
  - Arrhythmia supraventricular [Unknown]
